FAERS Safety Report 5342581-X (Version None)
Quarter: 2007Q2

REPORT INFORMATION
  Report Type: 
  Country: None (occurrence: None)
  Receive Date: 20070601
  Receipt Date: 20070307
  Transmission Date: 20071010
  Serious: No
  Sender: FDA-Public Use
  Company Number: A0642215A

PATIENT
  Age: 24 Year
  Sex: Female

DRUGS (22)
  1. AUGMENTIN '125' [Suspect]
     Indication: DRUG USE FOR UNKNOWN INDICATION
  2. FLORINEF [Concomitant]
  3. ELECTROLYTES [Concomitant]
  4. VITAMIN B [Concomitant]
  5. OSTEO [Concomitant]
  6. COENZYME Q10 [Concomitant]
  7. CREATINE [Concomitant]
  8. DOXYCYCLINE [Concomitant]
  9. MACRODANTIN [Concomitant]
  10. DITROPAN [Concomitant]
  11. BENADRYL [Concomitant]
  12. ALLEGRA [Concomitant]
  13. SINGULAIR [Concomitant]
  14. NASONEX [Concomitant]
  15. EVENING PRIMROSE OIL [Concomitant]
  16. NEXIUM [Concomitant]
  17. IBUPROFEN [Concomitant]
  18. LIDODERM [Concomitant]
  19. MURADASE [Concomitant]
  20. MCT OIL [Concomitant]
  21. UNKNOWN MEDICATION [Concomitant]
  22. ASCORBIC ACID [Concomitant]

REACTIONS (4)
  - ABDOMINAL DISTENSION [None]
  - DRUG ADMINISTRATION ERROR [None]
  - FLATULENCE [None]
  - MEDICATION ERROR [None]
